FAERS Safety Report 6196098-3 (Version None)
Quarter: 2009Q2

REPORT INFORMATION
  Report Type: 
  Country: None (occurrence: None)
  Receive Date: 20090520
  Receipt Date: 20070702
  Transmission Date: 20091009
  Serious: Yes (Hospitalization, Other)
  Sender: FDA-Public Use
  Company Number: US-ASTRAZENECA-2006UW21038

PATIENT
  Age: 19883 Day
  Sex: Female
  Weight: 63 kg

DRUGS (26)
  1. SEROQUEL [Suspect]
     Indication: DEPRESSION
     Route: 048
     Dates: start: 20050901, end: 20060518
  2. SEROQUEL [Suspect]
     Indication: NERVOUSNESS
     Route: 048
     Dates: start: 20050901, end: 20060518
  3. SEROQUEL [Suspect]
     Indication: INSOMNIA
     Route: 048
     Dates: start: 20050901, end: 20060518
  4. SEROQUEL [Suspect]
     Dosage: 100MG-400 MG
     Route: 048
     Dates: start: 20050309
  5. SEROQUEL [Suspect]
     Dosage: 100MG-400 MG
     Route: 048
     Dates: start: 20050309
  6. SEROQUEL [Suspect]
     Dosage: 100MG-400 MG
     Route: 048
     Dates: start: 20050309
  7. NORVASC [Concomitant]
     Route: 048
  8. PRILOSEC [Concomitant]
     Route: 065
  9. MEVACOR [Concomitant]
     Route: 048
  10. PERCOCET [Concomitant]
     Route: 065
  11. PREDNISONE [Concomitant]
     Route: 048
  12. ZOLOFT [Concomitant]
     Dosage: 50 MG-100 MG
     Route: 048
  13. DEXAMETHASONE 4MG TAB [Concomitant]
     Route: 042
  14. K-DUR [Concomitant]
     Route: 048
  15. TYLENOL ES [Concomitant]
     Dosage: 500MG-1000MG
     Route: 048
  16. PHENERGAN [Concomitant]
     Dosage: 12.5MG-50MG
     Route: 065
  17. SLOW MAG [Concomitant]
     Route: 048
  18. PEPCID [Concomitant]
     Route: 065
  19. K-LYTE ORANGE [Concomitant]
     Dosage: 25 MEQ-50 MEQ
     Route: 048
  20. VENTOLIN [Concomitant]
     Route: 065
  21. NEXIUM [Concomitant]
     Route: 048
  22. OMNICEF [Concomitant]
     Route: 065
  23. NABUMETONE [Concomitant]
     Route: 065
  24. PEDIATEX- D [Concomitant]
     Route: 065
  25. HYDROCODONE BITARTRATE [Concomitant]
     Route: 065
  26. MOTRIN [Concomitant]
     Route: 065

REACTIONS (8)
  - CHRONIC OBSTRUCTIVE PULMONARY DISEASE [None]
  - DIABETES MELLITUS [None]
  - HYPERLIPIDAEMIA [None]
  - HYPERTENSION [None]
  - LARYNGEAL POLYP [None]
  - PANCREATITIS [None]
  - PNEUMONIA [None]
  - THYROID DISORDER [None]
